FAERS Safety Report 8041643-6 (Version None)
Quarter: 2012Q1

REPORT INFORMATION
  Report Type: 
  Country: None (occurrence: None)
  Receive Date: 20120112
  Receipt Date: 20120104
  Transmission Date: 20120608
  Serious: No
  Sender: FDA-Public Use
  Company Number: US-JNJFOC-20111107029

PATIENT
  Sex: Female

DRUGS (1)
  1. INVEGA [Suspect]
     Indication: PSYCHOTIC DISORDER
     Route: 048
     Dates: start: 20110606

REACTIONS (1)
  - TREMOR [None]
